FAERS Safety Report 9729065 (Version 1)
Quarter: 2013Q4

REPORT INFORMATION
  Report Type: Spontaneous
  Country: US (occurrence: None)
  Receive Date: 20131203
  Receipt Date: 20131203
  Transmission Date: 20140711
  Serious: No
  Sender: FDA-Public Use
  Company Number: None

PATIENT
  Sex: Male

DRUGS (11)
  1. AFINITOR [Suspect]
     Route: 048
     Dates: start: 20130211
  2. AFINITOR [Suspect]
     Route: 048
     Dates: start: 20130211
  3. CALCITROL [Concomitant]
  4. RENA-VITE [Concomitant]
  5. SENSIPAR [Concomitant]
  6. HYDROXYZINE [Concomitant]
  7. NIFEDIPINE [Concomitant]
  8. LOVAZA [Concomitant]
  9. RENVELA [Concomitant]
  10. ATORVASTATIN [Concomitant]
  11. METOPROLOL [Concomitant]

REACTIONS (1)
  - Gastric haemorrhage [None]
